FAERS Safety Report 13739368 (Version 1)
Quarter: 2017Q3

REPORT INFORMATION
  Report Type: Spontaneous
  Country: US (occurrence: US)
  Receive Date: 20170710
  Receipt Date: 20170710
  Transmission Date: 20171127
  Serious: Yes (Other)
  Sender: FDA-Public Use
  Company Number: None

PATIENT
  Age: 88 Year
  Sex: Male

DRUGS (10)
  1. CETIRIZINE [Concomitant]
     Active Substance: CETIRIZINE HYDROCHLORIDE
  2. RA CALCIUM [Concomitant]
  3. TRAVATAN [Concomitant]
     Active Substance: TRAVOPROST
  4. ASPIRIN. [Concomitant]
     Active Substance: ASPIRIN
  5. GINGKO [Concomitant]
     Active Substance: GINKGO
  6. XGEVA [Suspect]
     Active Substance: DENOSUMAB
     Indication: PROSTATE CANCER
     Dosage: FREQUENCY - Q 4 WEEKS SQ
     Route: 058
     Dates: start: 20160913
  7. DOCUSATE [Concomitant]
     Active Substance: DOCUSATE
  8. VITAMIN D3 [Concomitant]
     Active Substance: CHOLECALCIFEROL
  9. LUPRON [Concomitant]
     Active Substance: LEUPROLIDE ACETATE
  10. LISINOPRIL. [Concomitant]
     Active Substance: LISINOPRIL

REACTIONS (1)
  - Osteonecrosis of jaw [None]

NARRATIVE: CASE EVENT DATE: 201705
